FAERS Safety Report 6760057-X (Version None)
Quarter: 2010Q2

REPORT INFORMATION
  Report Type: 
  Country: None (occurrence: None)
  Receive Date: 20100604
  Receipt Date: 20100520
  Transmission Date: 20101027
  Serious: Yes (Hospitalization)
  Sender: FDA-Public Use
  Company Number: 220002N06FRA

PATIENT
  Age: 56 Year
  Sex: Female
  Weight: 79 kg

DRUGS (8)
  1. SAIZEN [Suspect]
     Indication: HYPOPITUITARISM
     Dosage: 0.8 MG, 1 IN 1 D
     Dates: start: 20030625
  2. HYDROCORTONE [Suspect]
     Indication: HYPOPITUITARISM
     Dosage: 20 MG, 1 IN 1 D, ORAL
     Route: 048
     Dates: start: 19820101
  3. KLIOGEST (TRISEKVENS /00441501/) [Suspect]
     Indication: HYPOPITUITARISM
     Dosage: 1 DF, 1 IN 1D, ORAL
     Route: 048
     Dates: start: 20030806
  4. LEVOTHYROXINE SODIUM [Suspect]
     Indication: HYPOPITUITARISM
     Dosage: 100 MCG, 1 IN 1 D, ORAL
     Route: 048
     Dates: start: 20051207
  5. FENOFIBRATE [Suspect]
     Indication: HYPERTRIGLYCERIDAEMIA
     Dosage: 160 MG, 1 IN 1 D, ORAL
     Route: 048
     Dates: start: 20040404
  6. OROCAL D3 (LEKOVIT CA) [Suspect]
     Indication: OSTEOPENIA
     Dosage: 1 DF, 1 IN 1 D, ORAL
     Route: 048
     Dates: start: 20060404
  7. PROZAC [Suspect]
     Indication: DEPRESSION
     Dosage: 20 MG, 1 IN 1 D, ORAL
     Route: 048
     Dates: start: 20030806
  8. ZOVIRAX [Concomitant]

REACTIONS (5)
  - BRAIN OEDEMA [None]
  - CEREBROVASCULAR DISORDER [None]
  - HERPES PHARYNGITIS [None]
  - MENINGISM [None]
  - MENINGITIS [None]
